FAERS Safety Report 7770356-0 (Version None)
Quarter: 2011Q3

REPORT INFORMATION
  Report Type: 
  Country: None (occurrence: None)
  Receive Date: 20110922
  Receipt Date: 20100825
  Transmission Date: 20111222
  Serious: No
  Sender: FDA-Public Use
  Company Number: US-ASTRAZENECA-2008UW15971

PATIENT
  Age: 47 Year
  Sex: Male
  Weight: 97.1 kg

DRUGS (33)
  1. SEROQUEL [Suspect]
     Route: 048
     Dates: start: 20020412, end: 20060109
  2. SEROQUEL [Suspect]
     Dosage: 300 MG
     Route: 048
     Dates: start: 20080101
  3. ZOCOR [Concomitant]
     Indication: BLOOD CHOLESTEROL INCREASED
     Dates: start: 20070906
  4. SEROQUEL [Suspect]
     Dosage: 100-200 MG
     Route: 048
     Dates: start: 20020412, end: 20050101
  5. SEROQUEL [Suspect]
     Route: 048
     Dates: start: 20020412, end: 20060109
  6. DEPAKOTE [Concomitant]
     Dates: start: 20040701, end: 20051101
  7. SEROQUEL [Suspect]
     Dosage: 300 MG
     Route: 048
     Dates: start: 20080101, end: 20080301
  8. SEROQUEL [Suspect]
     Route: 048
     Dates: start: 20020412, end: 20060109
  9. SEROQUEL [Suspect]
     Dosage: 300 MG
     Route: 048
     Dates: start: 20080101
  10. ZOCOR [Concomitant]
     Indication: HYPERLIPIDAEMIA
     Dates: start: 20070906
  11. ABILIFY [Concomitant]
  12. SEROQUEL [Suspect]
     Indication: DEPRESSION
     Route: 048
     Dates: start: 19921101, end: 19971101
  13. SEROQUEL [Suspect]
     Indication: SLEEP DISORDER
     Route: 048
     Dates: start: 19921101, end: 19971101
  14. SEROQUEL [Suspect]
     Dosage: 100-200 MG
     Route: 048
     Dates: start: 20020412, end: 20050101
  15. SEROQUEL [Suspect]
     Dosage: 100-200 MG
     Route: 048
     Dates: start: 20020412, end: 20050101
  16. SEROQUEL [Suspect]
     Dosage: 100-200 MG
     Route: 048
     Dates: start: 20050901, end: 20060101
  17. SEROQUEL [Suspect]
     Dosage: 300 MG
     Route: 048
     Dates: start: 20080101
  18. CLOZAPINE [Concomitant]
  19. DEPAKOTE [Concomitant]
     Dosage: 500-1500 MG
     Dates: start: 20020401, end: 20030601
  20. SEROQUEL [Suspect]
     Indication: INSOMNIA
     Route: 048
     Dates: start: 19921101, end: 19971101
  21. SEROQUEL [Suspect]
     Indication: BIPOLAR DISORDER
     Route: 048
     Dates: start: 19921101, end: 19971101
  22. SEROQUEL [Suspect]
     Route: 048
     Dates: start: 20020412, end: 20060109
  23. SEROQUEL [Suspect]
     Dosage: 100-200 MG
     Route: 048
     Dates: start: 20050901, end: 20060101
  24. SEROQUEL [Suspect]
     Dosage: 100-200 MG
     Route: 048
     Dates: start: 20050901, end: 20060101
  25. SEROQUEL [Suspect]
     Dosage: 300 MG
     Route: 048
     Dates: start: 20080101
  26. SEROQUEL [Suspect]
     Dosage: 300 MG
     Route: 048
     Dates: start: 20080101, end: 20080301
  27. SEROQUEL [Suspect]
     Dosage: 300 MG
     Route: 048
     Dates: start: 20080101, end: 20080301
  28. SEROQUEL [Suspect]
     Dosage: 300 MG
     Route: 048
     Dates: start: 20080101, end: 20080301
  29. NAVANE [Concomitant]
     Dates: start: 19950101, end: 19980101
  30. SEROQUEL [Suspect]
     Dosage: 100-200 MG
     Route: 048
     Dates: start: 20020412, end: 20050101
  31. SEROQUEL [Suspect]
     Dosage: 100-200 MG
     Route: 048
     Dates: start: 20050901, end: 20060101
  32. ABILIFY [Concomitant]
     Dates: start: 20050701, end: 20051201
  33. THORAZINE [Concomitant]
     Dates: start: 19950101, end: 19980101

REACTIONS (8)
  - BLOOD CHOLESTEROL INCREASED [None]
  - TYPE 2 DIABETES MELLITUS [None]
  - NERVOUS SYSTEM DISORDER [None]
  - DIABETIC COMPLICATION [None]
  - DIABETES MELLITUS [None]
  - HEAD INJURY [None]
  - HYPERLIPIDAEMIA [None]
  - BLOOD TRIGLYCERIDES INCREASED [None]
